FAERS Safety Report 8302590-5 (Version None)
Quarter: 2012Q2

REPORT INFORMATION
  Report Type: 
  Country: None (occurrence: None)
  Receive Date: 20120420
  Receipt Date: 20120410
  Transmission Date: 20120825
  Serious: Yes (Other)
  Sender: FDA-Public Use
  Company Number: KR-ROCHE-1060904

PATIENT
  Age: 77 Year
  Sex: Female

DRUGS (1)
  1. ALTEPLASE [Suspect]
     Indication: ISCHAEMIC STROKE
     Route: 042

REACTIONS (4)
  - MEMORY IMPAIRMENT [None]
  - DIFFUSE AXONAL INJURY [None]
  - HEADACHE [None]
  - NEUROLOGICAL DECOMPENSATION [None]
